FAERS Safety Report 7002658-X (Version None)
Quarter: 2010Q3

REPORT INFORMATION
  Report Type: 
  Country: None (occurrence: None)
  Receive Date: 20100920
  Receipt Date: 20100908
  Transmission Date: 20110219
  Serious: Yes (Hospitalization)
  Sender: FDA-Public Use
  Company Number: US-ELI_LILLY_AND_COMPANY-US201009003147

PATIENT
  Age: 61 Year
  Sex: Female

DRUGS (16)
  1. FORTEO [Suspect]
     Indication: OSTEOPOROSIS
     Dosage: 20 UG, DAILY (1/D)
     Dates: start: 20100401, end: 20100621
  2. FORTEO [Suspect]
     Dates: start: 20100701
  3. THEOPHYLLINE [Concomitant]
  4. PROLASTIN [Concomitant]
  5. MUCINEX [Concomitant]
  6. ALLEGRA [Concomitant]
  7. CALCIUM [Concomitant]
     Dosage: 1200 MG, DAILY (1/D)
  8. SINGULAIR [Concomitant]
  9. PEPCID [Concomitant]
  10. PREVACID [Concomitant]
  11. ALBUTEROL SULFATE [Concomitant]
  12. IPRATROPIUM BROMIDE [Concomitant]
  13. FLONASE [Concomitant]
  14. NASALCROM [Concomitant]
  15. PREDNISONE [Concomitant]
     Dosage: 4 MG, UNK
  16. NORVASC [Concomitant]
     Dosage: 5 MG, UNK

REACTIONS (5)
  - BRONCHOSPASM [None]
  - CHRONIC OBSTRUCTIVE PULMONARY DISEASE [None]
  - EMPHYSEMA [None]
  - NAUSEA [None]
  - RETCHING [None]
